FAERS Safety Report 6315141-1 (Version None)
Quarter: 2009Q3

REPORT INFORMATION
  Report Type: 
  Country: None (occurrence: None)
  Receive Date: 20090819
  Receipt Date: 20090817
  Transmission Date: 20100115
  Serious: No
  Sender: FDA-Public Use
  Company Number: PL-JNJFOC-20090805291

PATIENT
  Age: 82 Year
  Sex: Female

DRUGS (1)
  1. DURAGESIC-100 [Suspect]
     Indication: BONE PAIN
     Route: 062

REACTIONS (3)
  - MALAISE [None]
  - RASH [None]
  - TREATMENT NONCOMPLIANCE [None]
